FAERS Safety Report 9877173 (Version 2)
Quarter: 2014Q2

REPORT INFORMATION
  Report Type: Spontaneous
  Country: CA (occurrence: CA)
  Receive Date: 20140206
  Receipt Date: 20140410
  Transmission Date: 20141212
  Serious: Yes (Other)
  Sender: FDA-Public Use
  Company Number: CA-ABBVIE-14P-028-1197689-00

PATIENT
  Age: 59 Year
  Sex: Female

DRUGS (4)
  1. LUPRON [Suspect]
     Indication: HAEMORRHAGE
     Route: 058
     Dates: start: 201306
  2. LUPRON [Suspect]
     Indication: ARTIFICIAL MENOPAUSE
  3. FEMARA [Suspect]
     Indication: ARTIFICIAL MENOPAUSE
     Dates: start: 201306, end: 201306
  4. FEMARA [Suspect]
     Indication: HAEMORRHAGE

REACTIONS (1)
  - Vision blurred [Unknown]
